FAERS Safety Report 6192585-2 (Version None)
Quarter: 2009Q2

REPORT INFORMATION
  Report Type: 
  Country: None (occurrence: None)
  Receive Date: 20090518
  Receipt Date: 20090511
  Transmission Date: 20091009
  Serious: Yes (Other)
  Sender: FDA-Public Use
  Company Number: GB-JNJFOC-20090502590

PATIENT
  Age: 5 Decade
  Sex: Male

DRUGS (1)
  1. HALDOL [Suspect]
     Indication: SEDATION
     Dosage: UPTO 20 MG A DAY FOR 2 TO 3 DAYS
     Route: 065

REACTIONS (2)
  - NEUROLEPTIC MALIGNANT SYNDROME [None]
  - RESPIRATORY DISORDER [None]
